FAERS Safety Report 5493234-9 (Version None)
Quarter: 2007Q4

REPORT INFORMATION
  Report Type: 
  Country: None (occurrence: None)
  Receive Date: 20071023
  Receipt Date: 20071010
  Transmission Date: 20080405
  Serious: Yes (Hospitalization)
  Sender: FDA-Public Use
  Company Number: US-AMGEN-KDL243159

PATIENT
  Sex: Male

DRUGS (8)
  1. ENBREL [Suspect]
     Indication: PSORIASIS
     Route: 058
     Dates: start: 20070601, end: 20070913
  2. LIBRIUM [Concomitant]
  3. AMBIEN [Concomitant]
  4. CEFTRIAXONE [Concomitant]
  5. LEVOFLOXACIN [Concomitant]
  6. LEXAPRO [Concomitant]
  7. VITAMINS [Concomitant]
  8. REGLAN [Concomitant]

REACTIONS (7)
  - CHEST PAIN [None]
  - COUGH [None]
  - GINGIVAL BLEEDING [None]
  - HEPATIC CIRRHOSIS [None]
  - INJECTION SITE BRUISING [None]
  - JAUNDICE [None]
  - STRESS [None]
